FAERS Safety Report 6356056-2 (Version None)
Quarter: 2009Q3

REPORT INFORMATION
  Report Type: 
  Country: None (occurrence: None)
  Receive Date: 20090910
  Receipt Date: 20090910
  Transmission Date: 20100115
  Serious: Yes (Hospitalization)
  Sender: FDA-Public Use
  Company Number: None

PATIENT
  Age: 59 Year
  Sex: Female
  Weight: 148.6 kg

DRUGS (2)
  1. ALIMTA [Suspect]
     Indication: UTERINE CANCER
     Dosage: 1200MG IV Q2 WKS.
     Route: 042
     Dates: start: 20090819
  2. TAXOTERE [Suspect]
     Indication: UTERINE CANCER
     Dosage: 120MG IV Q2 WKS.
     Route: 042
     Dates: start: 20090810

REACTIONS (2)
  - CATHETER SITE INFECTION [None]
  - PNEUMONIA [None]
